FAERS Safety Report 20389150 (Version 1)
Quarter: 2022Q1

REPORT INFORMATION
  Report Type: Spontaneous
  Country: US (occurrence: US)
  Receive Date: 20220128
  Receipt Date: 20220128
  Transmission Date: 20220424
  Serious: Yes (Other)
  Sender: FDA-Public Use
  Company Number: US-SA-2022SA018853

PATIENT
  Age: 70 Year
  Sex: Female
  Weight: 77.551 kg

DRUGS (5)
  1. KEVZARA [Suspect]
     Active Substance: SARILUMAB
     Dosage: UNK
     Dates: start: 20210202, end: 20210914
  2. RINVOQ [Concomitant]
     Active Substance: UPADACITINIB
     Dosage: 15 MG, QD
     Route: 048
     Dates: start: 20200304, end: 20210914
  3. UNSPECIFIED INGREDIENT [Concomitant]
     Active Substance: UNSPECIFIED INGREDIENT
     Route: 042
  4. ASPIRIN [Concomitant]
     Active Substance: ASPIRIN
  5. HYDROXYCHLOROQUINE DIPHOSPHATE [Concomitant]
     Active Substance: HYDROXYCHLOROQUINE DIPHOSPHATE

REACTIONS (2)
  - Leukopenia [Unknown]
  - Neutropenia [Unknown]

NARRATIVE: CASE EVENT DATE: 20211101
